FAERS Safety Report 6579343-1 (Version None)
Quarter: 2010Q1

REPORT INFORMATION
  Report Type: 
  Country: None (occurrence: None)
  Receive Date: 20100212
  Receipt Date: 20100205
  Transmission Date: 20100710
  Serious: Yes (Hospitalization, Other)
  Sender: FDA-Public Use
  Company Number: US-BAYER-200941628NA

PATIENT
  Age: 79 Year
  Sex: Male
  Weight: 56 kg

DRUGS (14)
  1. SORAFENIB [Suspect]
     Indication: PROSTATE CANCER
     Dosage: TOTAL DAILY DOSE: 400 MG  UNIT DOSE: 200 MG
     Route: 048
     Dates: end: 20100111
  2. SORAFENIB [Suspect]
     Dosage: TOTAL DAILY DOSE: 800 MG  UNIT DOSE: 200 MG
     Route: 048
     Dates: start: 20090817
  3. MITOXANTRONE [Suspect]
     Indication: PROSTATE CANCER
     Route: 042
     Dates: start: 20090817
  4. MITOXANTRONE [Suspect]
     Dosage: CYCLE 5 REDUCED DOSE
     Route: 042
  5. PREDNISONE [Concomitant]
  6. PROCHLORPERAZINE MALEATE [Concomitant]
  7. PEGFILGRASTIM [Concomitant]
  8. LUPRON [Concomitant]
  9. TYLENOL-500 [Concomitant]
  10. ZOMETA [Concomitant]
  11. NIFEDIPINE [Concomitant]
  12. MEGACE [Concomitant]
  13. POTASSIUM CHLORIDE [Concomitant]
  14. K-DUR [Concomitant]

REACTIONS (4)
  - DEEP VEIN THROMBOSIS [None]
  - FATIGUE [None]
  - GASTROINTESTINAL HAEMORRHAGE [None]
  - LUNG INFILTRATION [None]
